FAERS Safety Report 4703231-6 (Version None)
Quarter: 2005Q2

REPORT INFORMATION
  Report Type: 
  Country: None (occurrence: None)
  Receive Date: 20050628
  Receipt Date: 20050609
  Transmission Date: 20051028
  Serious: Yes (Other)
  Sender: FDA-Public Use
  Company Number: DSA_60497_2005

PATIENT
  Age: 55 Year
  Sex: Female

DRUGS (6)
  1. DIHYDROERGOTAMINE-SANDOZ [Suspect]
     Indication: ORTHOSTATIC HYPOTENSION
     Dosage: 30 GTT BID PO
     Route: 048
     Dates: start: 20050301
  2. CALCIUM GLUCONATE [Concomitant]
  3. CORTISONE [Concomitant]
  4. DEDROGYL [Concomitant]
  5. GAVISCON [Concomitant]
  6. OMEPRAZOLE [Concomitant]

REACTIONS (1)
  - PHLEBITIS [None]
